FAERS Safety Report 6636723-3 (Version None)
Quarter: 2010Q1

REPORT INFORMATION
  Report Type: 
  Country: None (occurrence: None)
  Receive Date: 20100316
  Receipt Date: 20100308
  Transmission Date: 20100710
  Serious: Yes (Hospitalization)
  Sender: FDA-Public Use
  Company Number: B0638265A

PATIENT
  Sex: Male

DRUGS (2)
  1. LAMICTAL CD [Suspect]
     Indication: EPILEPSY
     Route: 048
     Dates: start: 20090803, end: 20090815
  2. DEPAKENE [Concomitant]
     Indication: EPILEPSY
     Route: 048
     Dates: start: 20090101, end: 20090802

REACTIONS (14)
  - CHILLS [None]
  - DERMATITIS EXFOLIATIVE [None]
  - DRUG RASH WITH EOSINOPHILIA AND SYSTEMIC SYMPTOMS [None]
  - GAMMA-GLUTAMYLTRANSFERASE INCREASED [None]
  - GENERAL PHYSICAL HEALTH DETERIORATION [None]
  - HEADACHE [None]
  - HEPATOCELLULAR INJURY [None]
  - HYPERSENSITIVITY [None]
  - INFLAMMATION [None]
  - MYALGIA [None]
  - PHOTOPHOBIA [None]
  - PYREXIA [None]
  - RASH GENERALISED [None]
  - TOXIC SKIN ERUPTION [None]
